FAERS Safety Report 5063374-7 (Version None)
Quarter: 2006Q3

REPORT INFORMATION
  Report Type: 
  Country: None (occurrence: None)
  Receive Date: 20060727
  Receipt Date: 20060719
  Transmission Date: 20061208
  Serious: Yes (Other)
  Sender: FDA-Public Use
  Company Number: PHEH2006US09322

PATIENT
  Sex: Female

DRUGS (1)
  1. DIOVAN [Suspect]
     Indication: HYPERTENSION
     Dosage: 80 MG, QD
     Route: 048
     Dates: start: 20060401

REACTIONS (10)
  - ABDOMINAL DISTENSION [None]
  - AMNESIA [None]
  - ARTHRALGIA [None]
  - BACK PAIN [None]
  - DIARRHOEA [None]
  - DYSPNOEA [None]
  - HYPOTRICHOSIS [None]
  - LIBIDO DECREASED [None]
  - SLEEP APNOEA SYNDROME [None]
  - WEIGHT INCREASED [None]
